FAERS Safety Report 14205407 (Version 1)
Quarter: 2017Q4

REPORT INFORMATION
  Report Type: Report from Study
  Country: None (occurrence: PA)
  Receive Date: 20171120
  Receipt Date: 20171120
  Transmission Date: 20180321
  Serious: Yes (Death)
  Sender: FDA-Public Use
  Company Number: PA-ABBVIE-17S-125-2168922-00

PATIENT
  Age: 35 Year
  Sex: Male

DRUGS (1)
  1. ZEMPLAR [Suspect]
     Active Substance: PARICALCITOL
     Indication: PRODUCT USED FOR UNKNOWN INDICATION
     Route: 048
     Dates: start: 20170105, end: 20171114

REACTIONS (1)
  - Death [Fatal]

NARRATIVE: CASE EVENT DATE: 20171114
